FAERS Safety Report 15645591 (Version 2)
Quarter: 2018Q4

REPORT INFORMATION
  Report Type: Not Available
  Country: US (occurrence: US)
  Receive Date: 20181121
  Receipt Date: 20181211
  Transmission Date: 20190205
  Serious: No
  Sender: FDA-Public Use
  Company Number: US-NEUROCRINE BIOSCIENCES INC.-2018NBI03275

PATIENT
  Age: 37 Year
  Sex: Female

DRUGS (6)
  1. SERTRALINE [Concomitant]
     Active Substance: SERTRALINE HYDROCHLORIDE
  2. PRAZOSIN. [Concomitant]
     Active Substance: PRAZOSIN
     Dosage: EVERY NIGHT
  3. PRAZOSIN. [Concomitant]
     Active Substance: PRAZOSIN
     Dosage: EVERY MORNING
  4. LITHIUM. [Concomitant]
     Active Substance: LITHIUM
  5. INGREZZA [Suspect]
     Active Substance: VALBENAZINE
     Indication: TARDIVE DYSKINESIA
     Dates: start: 20181025, end: 20181106
  6. QUETIAPINE. [Concomitant]
     Active Substance: QUETIAPINE
     Dosage: THREE TIMES A DAY (TID), AS REQUIRED (PRN)

REACTIONS (2)
  - Somnolence [Recovered/Resolved]
  - Feeling drunk [Recovered/Resolved]

NARRATIVE: CASE EVENT DATE: 20181028
